FAERS Safety Report 5463265-3 (Version None)
Quarter: 2007Q3

REPORT INFORMATION
  Report Type: 
  Country: None (occurrence: None)
  Receive Date: 20070920
  Receipt Date: 20070919
  Transmission Date: 20080115
  Serious: Yes (Other)
  Sender: FDA-Public Use
  Company Number: DE-BRISTOL-MYERS SQUIBB COMPANY-13911763

PATIENT
  Age: 45 Year
  Sex: Female

DRUGS (4)
  1. ETOPOSIDE [Suspect]
     Indication: LANGERHANS' CELL GRANULOMATOSIS
  2. VINBLASTINE SULFATE [Suspect]
     Indication: LANGERHANS' CELL GRANULOMATOSIS
     Dosage: MAX. 10MG, DAYS 1, 8, 15, 22, 29, 36
     Route: 042
  3. PREDNISOLONE [Suspect]
     Indication: LANGERHANS' CELL GRANULOMATOSIS
     Dosage: MAX. 60MG, DAYS 1-5 EVERY 3 WEEKS
  4. MERCAPTOPURINE [Suspect]
     Indication: LANGERHANS' CELL GRANULOMATOSIS
     Dosage: MAX. 50MG

REACTIONS (3)
  - DYSPNOEA EXERTIONAL [None]
  - OSTEOLYSIS [None]
  - RASH [None]
